FAERS Safety Report 13797114 (Version 1)
Quarter: 2017Q3

REPORT INFORMATION
  Report Type: Spontaneous
  Country: US (occurrence: US)
  Receive Date: 20170727
  Receipt Date: 20170727
  Transmission Date: 20171127
  Serious: No
  Sender: FDA-Public Use
  Company Number: US-STRIDES ARCOLAB LIMITED-2017SP005404

PATIENT

DRUGS (3)
  1. MYCOPHENOLATE MOFETIL. [Suspect]
     Active Substance: MYCOPHENOLATE MOFETIL
     Indication: GLOMERULONEPHRITIS MEMBRANOUS
     Dosage: 1 G, BID
     Route: 065
  2. METHYLPREDNISOLONE. [Concomitant]
     Active Substance: METHYLPREDNISOLONE
     Indication: GLOMERULONEPHRITIS MEMBRANOUS
     Dosage: 12 MG, QD
     Route: 065
  3. SODIUM [Concomitant]
     Active Substance: SODIUM
     Indication: MEDICAL DIET
     Dosage: 2 G PER DAY
     Route: 065

REACTIONS (1)
  - Off label use [Unknown]
